FAERS Safety Report 15583634 (Version 1)
Quarter: 2018Q4

REPORT INFORMATION
  Report Type: Spontaneous
  Country: US (occurrence: US)
  Receive Date: 20181031
  Receipt Date: 20181031
  Transmission Date: 20190205
  Serious: No
  Sender: FDA-Public Use
  Company Number: None

PATIENT
  Age: 54 Year
  Sex: Male

DRUGS (1)
  1. TEMOZOLOMIDE 100MG CAP [Suspect]
     Active Substance: TEMOZOLOMIDE
     Indication: LUNG NEOPLASM MALIGNANT
     Route: 048
     Dates: start: 201810

REACTIONS (2)
  - Oedema peripheral [None]
  - Localised oedema [None]

NARRATIVE: CASE EVENT DATE: 20181012
